FAERS Safety Report 19651702 (Version 1)
Quarter: 2021Q3

REPORT INFORMATION
  Report Type: Spontaneous
  Country: US (occurrence: US)
  Receive Date: 20210803
  Receipt Date: 20210803
  Transmission Date: 20211014
  Serious: No
  Sender: FDA-Public Use
  Company Number: US-DRREDDYS-SPO/USA/21/0138332

PATIENT
  Age: 81 Year
  Sex: Female
  Weight: 54 kg

DRUGS (5)
  1. DIVALPROEX SODIUM EXTENDED RELEASE TABLETS 250 MG [Suspect]
     Active Substance: DIVALPROEX SODIUM
     Indication: VERTIGO
  2. DIVALPROEX SODIUM EXTENDED RELEASE TABLETS 250 MG [Suspect]
     Active Substance: DIVALPROEX SODIUM
     Indication: HEADACHE
     Dates: start: 20210722, end: 20210726
  3. LORAZEPAM INJECTION USP, 2 MG/ML AND 4 MG/ML [Concomitant]
     Active Substance: LORAZEPAM
     Indication: PRODUCT USED FOR UNKNOWN INDICATION
  4. TRAZODONE [Concomitant]
     Active Substance: TRAZODONE HYDROCHLORIDE
     Indication: PRODUCT USED FOR UNKNOWN INDICATION
  5. LEVOTHYROXINE SODIUM. [Concomitant]
     Active Substance: LEVOTHYROXINE SODIUM
     Indication: PRODUCT USED FOR UNKNOWN INDICATION

REACTIONS (3)
  - Product use in unapproved indication [Unknown]
  - Constipation [Unknown]
  - Initial insomnia [Unknown]
